FAERS Safety Report 18374482 (Version 2)
Quarter: 2020Q4

REPORT INFORMATION
  Report Type: Spontaneous
  Country: US (occurrence: US)
  Receive Date: 20201012
  Receipt Date: 20201119
  Transmission Date: 20210114
  Serious: No
  Sender: FDA-Public Use
  Company Number: US-JNJFOC-20201003834

PATIENT
  Age: 47 Year
  Sex: Female

DRUGS (1)
  1. TREMFYA [Suspect]
     Active Substance: GUSELKUMAB
     Indication: PRODUCT USED FOR UNKNOWN INDICATION
     Route: 065

REACTIONS (8)
  - Device physical property issue [Unknown]
  - Injection site erythema [Unknown]
  - Product container seal issue [Unknown]
  - Product outer packaging issue [Unknown]
  - Injection site pain [Unknown]
  - Underdose [Unknown]
  - Accidental exposure to product [Unknown]
  - Injection site bruising [Unknown]
